FAERS Safety Report 12673152 (Version 2)
Quarter: 2020Q1

REPORT INFORMATION
  Report Type: Report from Study
  Country: CO (occurrence: CO)
  Receive Date: 20160822
  Receipt Date: 20200228
  Transmission Date: 20200409
  Serious: Yes (Other)
  Sender: FDA-Public Use
  Company Number: CO-JNJFOC-20160814605

PATIENT
  Sex: Male
  Weight: 78 kg

DRUGS (3)
  1. STELARA [Suspect]
     Active Substance: USTEKINUMAB
     Route: 058
     Dates: start: 20160426
  2. STELARA [Suspect]
     Active Substance: USTEKINUMAB
     Indication: PSORIASIS
     Route: 058
     Dates: start: 20130326
  3. ISONIAZID. [Suspect]
     Active Substance: ISONIAZID

REACTIONS (8)
  - Burning sensation [Recovering/Resolving]
  - Headache [Recovering/Resolving]
  - Jaundice [Recovering/Resolving]
  - Arthralgia [Unknown]
  - Flushing [Unknown]
  - Abdominal pain [Recovering/Resolving]
  - Tachycardia [Unknown]
  - Tuberculin test positive [Unknown]
